FAERS Safety Report 5117717-6 (Version None)
Quarter: 2006Q3

REPORT INFORMATION
  Report Type: 
  Country: None (occurrence: None)
  Receive Date: 20060928
  Receipt Date: 20060928
  Transmission Date: 20061208
  Serious: Yes (Other)
  Sender: FDA-Public Use
  Company Number: None

PATIENT
  Age: 33 Year
  Sex: Female
  Weight: 83.0083 kg

DRUGS (1)
  1. ZALEPLON [Suspect]
     Indication: INITIAL INSOMNIA
     Dosage: 10 MG AT HS PO
     Route: 048
     Dates: start: 20060913, end: 20060913

REACTIONS (3)
  - FEELING ABNORMAL [None]
  - HEADACHE [None]
  - VISUAL DISTURBANCE [None]
